FAERS Safety Report 5683152-5 (Version None)
Quarter: 2008Q1

REPORT INFORMATION
  Report Type: 
  Country: None (occurrence: None)
  Receive Date: 20080327
  Receipt Date: 20080319
  Transmission Date: 20080703
  Serious: Yes (Hospitalization)
  Sender: FDA-Public Use
  Company Number: FR-SANOFI-SYNTHELABO-A02200800910

PATIENT
  Sex: Female

DRUGS (11)
  1. DIGITALINE NATIVELLE [Concomitant]
     Indication: ATRIAL FIBRILLATION
     Route: 048
     Dates: end: 20080128
  2. CARDENSIEL [Concomitant]
     Indication: HYPERTENSION
     Route: 048
  3. IRBESARTAN [Concomitant]
     Indication: HYPERTENSION
     Route: 048
  4. PHYSIOTENS [Concomitant]
     Indication: HYPERTENSION
     Route: 048
  5. ZOLPIDEM [Concomitant]
     Indication: DRUG USE FOR UNKNOWN INDICATION
     Route: 048
  6. MOPRAL [Concomitant]
     Indication: DRUG USE FOR UNKNOWN INDICATION
     Route: 048
  7. SINTROM [Interacting]
     Indication: ARRHYTHMIA
     Dosage: UNK
     Route: 048
     Dates: end: 20080130
  8. DEROXAT [Interacting]
     Indication: DRUG USE FOR UNKNOWN INDICATION
     Route: 048
  9. PLAVIX [Suspect]
     Indication: ACUTE CORONARY SYNDROME
     Dosage: UNK
     Route: 048
     Dates: start: 20080129, end: 20080130
  10. LOVENOX [Interacting]
     Indication: ACUTE CORONARY SYNDROME
     Route: 058
     Dates: start: 20080129, end: 20080129
  11. KARDEGIC [Interacting]
     Indication: ACUTE CORONARY SYNDROME
     Route: 048
     Dates: start: 20080129, end: 20080129

REACTIONS (3)
  - CEREBELLAR HAEMATOMA [None]
  - DRUG INTERACTION [None]
  - VERTIGO [None]
